FAERS Safety Report 4328962-1 (Version None)
Quarter: 2004Q1

REPORT INFORMATION
  Report Type: 
  Country: None (occurrence: None)
  Receive Date: 20040319
  Receipt Date: 20031121
  Transmission Date: 20041129
  Serious: No
  Sender: FDA-Public Use
  Company Number: US-JNJFOC-20031104941

PATIENT
  Age: 15 Year
  Sex: Female

DRUGS (2)
  1. ORTHO EVRA [Suspect]
     Indication: CONTRACEPTION
     Dosage: SEE IMAGE
     Route: 062
  2. . [Concomitant]

REACTIONS (1)
  - MENSTRUATION IRREGULAR [None]
